FAERS Safety Report 17701564 (Version 2)
Quarter: 2020Q4

REPORT INFORMATION
  Report Type: Report from Study
  Country: None (occurrence: SE)
  Receive Date: 20200423
  Receipt Date: 20201006
  Transmission Date: 20210113
  Serious: Yes (Other)
  Sender: FDA-Public Use
  Company Number: SE-ABBVIE-19K-150-3201967-00

PATIENT
  Sex: Male

DRUGS (2)
  1. DUODOPA [Suspect]
     Active Substance: CARBIDOPA\LEVODOPA
     Indication: PARKINSON^S DISEASE
     Dosage: EXTRA DOSE DECREASED FROM 0.8ML TO 0.4ML
     Route: 050
     Dates: start: 20100131, end: 2010
  2. DUODOPA [Suspect]
     Active Substance: CARBIDOPA\LEVODOPA
     Dosage: CURRENT DOSAGE: MD: 6ML, CD: 2.3ML/H, ED: 0.4ML
     Route: 050
     Dates: start: 20100223

REACTIONS (11)
  - Fall [Not Recovered/Not Resolved]
  - Tremor [Recovering/Resolving]
  - Hyperkinesia [Recovering/Resolving]
  - Anxiety [Not Recovered/Not Resolved]
  - Device difficult to use [Not Recovered/Not Resolved]
  - Balance disorder [Not Recovered/Not Resolved]
  - Device dislocation [Not Recovered/Not Resolved]
  - Wheelchair user [Not Recovered/Not Resolved]
  - Memory impairment [Not Recovered/Not Resolved]
  - Impaired self-care [Not Recovered/Not Resolved]
  - Pain [Not Recovered/Not Resolved]

NARRATIVE: CASE EVENT DATE: 2019
